FAERS Safety Report 5204221-X (Version None)
Quarter: 2007Q1

REPORT INFORMATION
  Report Type: 
  Country: None (occurrence: None)
  Receive Date: 20070110
  Receipt Date: 20060111
  Transmission Date: 20070707
  Serious: Yes (Other)
  Sender: FDA-Public Use
  Company Number: US-BRISTOL-MYERS SQUIBB COMPANY-13245683

PATIENT
  Age: 7 Year
  Sex: Male

DRUGS (2)
  1. ABILIFY [Suspect]
     Indication: INJURY
     Dosage: REDUCED TO 2.5 MG DAILY
     Route: 048
     Dates: start: 20051229
  2. ABILIFY [Suspect]
     Indication: CHILD ABUSE
     Dosage: REDUCED TO 2.5 MG DAILY
     Route: 048
     Dates: start: 20051229

REACTIONS (1)
  - PRIAPISM [None]
